FAERS Safety Report 12625347 (Version 1)
Quarter: 2016Q3

REPORT INFORMATION
  Report Type: Spontaneous
  Country: US (occurrence: US)
  Receive Date: 20160805
  Receipt Date: 20160805
  Transmission Date: 20161109
  Serious: No
  Sender: FDA-Public Use
  Company Number: US-LYNE LABORATORIES INC.-1055908

PATIENT
  Age: 80 Year
  Sex: Female
  Weight: 56.36 kg

DRUGS (2)
  1. TRIAMCINOLONE ACETONIDE. [Suspect]
     Active Substance: TRIAMCINOLONE ACETONIDE
     Indication: APHTHOUS ULCER
     Route: 061
     Dates: start: 20151217
  2. KEFLEX [Concomitant]
     Active Substance: CEPHALEXIN
     Route: 048
     Dates: start: 20151217, end: 20151221

REACTIONS (8)
  - Aphthous ulcer [Recovered/Resolved]
  - Headache [None]
  - Product packaging issue [None]
  - Gingivitis [None]
  - Abdominal pain [None]
  - Diarrhoea [None]
  - Dry mouth [None]
  - Aphthous ulcer [None]

NARRATIVE: CASE EVENT DATE: 201512
